FAERS Safety Report 23392123 (Version 7)
Quarter: 2025Q1

REPORT INFORMATION
  Report Type: Spontaneous
  Country: US (occurrence: US)
  Receive Date: 20240111
  Receipt Date: 20250204
  Transmission Date: 20250408
  Serious: Yes (Hospitalization, Other)
  Sender: PFIZER
  Company Number: US-PFIZER INC-202400005359

PATIENT
  Age: 57 Year
  Sex: Female
  Weight: 48.073 kg

DRUGS (13)
  1. IBRANCE [Suspect]
     Active Substance: PALBOCICLIB
     Indication: Breast cancer metastatic
     Dates: start: 202006
  2. IBRANCE [Suspect]
     Active Substance: PALBOCICLIB
     Indication: Hormone receptor positive breast cancer
     Dates: start: 202007
  3. IBRANCE [Suspect]
     Active Substance: PALBOCICLIB
     Indication: HER2 negative breast cancer
     Dosage: 100 MG, 1X/DAY
     Dates: start: 202007
  4. IBRANCE [Suspect]
     Active Substance: PALBOCICLIB
     Indication: White blood cell count
     Dates: start: 202008
  5. IBRANCE [Suspect]
     Active Substance: PALBOCICLIB
     Indication: Breast cancer stage IV
     Route: 048
  6. LETROZOLE [Concomitant]
     Active Substance: LETROZOLE
     Dates: start: 202007
  7. CALCIUM [Concomitant]
     Active Substance: CALCIUM
  8. FULVESTRANT [Concomitant]
     Active Substance: FULVESTRANT
     Dates: start: 202009, end: 2023
  9. CANNABIS SATIVA SUBSP. INDICA TOP [Concomitant]
     Active Substance: CANNABIS SATIVA SUBSP. INDICA TOP
  10. VITAMINS [Concomitant]
     Active Substance: VITAMINS
  11. OMEPRAZOLE [Concomitant]
     Active Substance: OMEPRAZOLE
     Dates: start: 202007
  12. PANTOPRAZOLE [Concomitant]
     Active Substance: PANTOPRAZOLE
     Dates: start: 202007
  13. PROBIOTICS NOS [Concomitant]
     Active Substance: PROBIOTICS NOS

REACTIONS (18)
  - Illness [Recovered/Resolved]
  - Dyspnoea [Unknown]
  - Nasopharyngitis [Not Recovered/Not Resolved]
  - Pneumonia [Recovered/Resolved]
  - White blood cell count decreased [Not Recovered/Not Resolved]
  - Oesophageal disorder [Unknown]
  - Neutropenia [Unknown]
  - Graves^ disease [Unknown]
  - Nausea [Unknown]
  - Weight decreased [Unknown]
  - Bone density decreased [Unknown]
  - Alopecia [Unknown]
  - Mood swings [Unknown]
  - Tumour marker increased [Unknown]
  - Dysgeusia [Unknown]
  - Malaise [Unknown]
  - Off label use [Unknown]
  - Product use issue [Unknown]

NARRATIVE: CASE EVENT DATE: 20200101
